FAERS Safety Report 14160067 (Version 4)
Quarter: 2025Q4

REPORT INFORMATION
  Report Type: Spontaneous
  Country: US (occurrence: US)
  Receive Date: 20171106
  Receipt Date: 20251127
  Transmission Date: 20260118
  Serious: Yes (Life-Threatening, Hospitalization, Other)
  Sender: AUROBINDO
  Company Number: US-AUROBINDO-AUR-APL-2017-43208

PATIENT
  Age: 76 Year
  Sex: Male

DRUGS (10)
  1. AMPICILLIN [Suspect]
     Active Substance: AMPICILLIN
     Indication: Meningitis bacterial
     Dosage: UNK
     Route: 065
  2. LEVOFLOXACIN [Suspect]
     Active Substance: LEVOFLOXACIN
     Indication: Citrobacter infection
     Dosage: UNK
     Route: 065
  3. MEROPENEM [Suspect]
     Active Substance: MEROPENEM
     Indication: Citrobacter infection
     Dosage: UNK
     Route: 065
  4. METRONIDAZOLE [Suspect]
     Active Substance: METRONIDAZOLE
     Indication: Meningitis bacterial
     Dosage: UNK
     Route: 065
  5. PIPERACILLIN AND TAZOBACTAM [Suspect]
     Active Substance: PIPERACILLIN SODIUM\TAZOBACTAM SODIUM
     Indication: Septic shock
     Dosage: UNK
     Route: 065
  6. VANCOMYCIN [Suspect]
     Active Substance: VANCOMYCIN
     Indication: Septic shock
     Dosage: UNK
     Route: 065
  7. CEFEPIME [Suspect]
     Active Substance: CEFEPIME HYDROCHLORIDE
     Indication: Meningitis bacterial
     Dosage: UNK
     Route: 065
  8. CEFTRIAXONE [Suspect]
     Active Substance: CEFTRIAXONE
     Indication: Meningitis bacterial
     Dosage: UNK
     Route: 065
  9. ACICLOVIR4 [Concomitant]
     Indication: Meningitis bacterial
     Dosage: UNK
     Route: 065
  10. DEXAMETHASONE4 [Concomitant]
     Indication: Meningitis bacterial
     Dosage: UNK
     Route: 065

REACTIONS (1)
  - Drug ineffective [Unknown]
